FAERS Safety Report 8873205 (Version 1)
Quarter: 2012Q4

REPORT INFORMATION
  Report Type: 
  Country: US (occurrence: US)
  Receive Date: 20121026
  Receipt Date: 20121026
  Transmission Date: 20130627
  Serious: No
  Sender: FDA-Public Use
  Company Number: US-AMGEN-USASP2012050605

PATIENT
  Age: 57 Year
  Sex: Female
  Weight: 71.2 kg

DRUGS (8)
  1. ENBREL [Suspect]
     Indication: PRODUCT USED FOR UNKNOWN INDICATION
     Dosage: 50 mg, 2 times/wk
     Route: 058
  2. MELATONIN [Concomitant]
     Dosage: 2.5 mg, UNK
  3. DETROL [Concomitant]
     Dosage: 1 mg, UNK
  4. XANAX [Concomitant]
     Dosage: 1 mg, UNK
  5. ZOLPIDEM [Concomitant]
     Dosage: 5 mg, UNK
  6. LEVOTHYROXIN [Concomitant]
     Dosage: 100 mug, UNK
  7. LAMOTRIGIN [Concomitant]
     Dosage: 150 mg, UNK
  8. CRESTOR [Concomitant]
     Dosage: 10 mg, UNK

REACTIONS (2)
  - Influenza like illness [Unknown]
  - Condition aggravated [Unknown]
